FAERS Safety Report 8298494-7 (Version None)
Quarter: 2012Q2

REPORT INFORMATION
  Report Type: 
  Country: None (occurrence: None)
  Receive Date: 20120419
  Receipt Date: 20120417
  Transmission Date: 20120825
  Serious: Yes (Hospitalization)
  Sender: FDA-Public Use
  Company Number: US-ROCHE-1060839

PATIENT
  Sex: Female
  Weight: 81.72 kg

DRUGS (1)
  1. XELODA [Suspect]
     Indication: COLON CANCER
     Route: 048
     Dates: start: 20111027, end: 20120321

REACTIONS (6)
  - PAIN [None]
  - FATIGUE [None]
  - SKIN DISCOLOURATION [None]
  - CONCUSSION [None]
  - ALOPECIA [None]
  - DIARRHOEA [None]
